FAERS Safety Report 8569117 (Version 2)
Quarter: 2014Q1

REPORT INFORMATION
  Report Type: Spontaneous
  Country: US (occurrence: None)
  Receive Date: 20120323
  Receipt Date: 20130305
  Transmission Date: 20141002
  Serious: Yes (Other)
  Sender: FDA-Public Use
  Company Number: 163-21880-11111468

PATIENT
  Age: 79 Year
  Sex: Male
  Weight: 74.84 kg

DRUGS (3)
  1. REVLIMID [Suspect]
     Indication: PLASMA CELL MYELOMA
     Dosage: 15 MG, DAILY X 21 DAYS, PO
     Route: 048
     Dates: start: 20110908
  2. PROCRIT (ERYTHROPOIETIN) (UNKNOWN) [Concomitant]
  3. WATER PILL (DIURETICS) (UNKNOWN) [Concomitant]

REACTIONS (3)
  - Deep vein thrombosis [None]
  - Anaemia [None]
  - Oedema peripheral [None]
